FAERS Safety Report 4687073-6 (Version None)
Quarter: 2005Q2

REPORT INFORMATION
  Report Type: 
  Country: None (occurrence: None)
  Receive Date: 20050608
  Receipt Date: 20050525
  Transmission Date: 20051028
  Serious: Yes (Hospitalization)
  Sender: FDA-Public Use
  Company Number: USA050599032

PATIENT
  Age: 18 Year
  Sex: Male

DRUGS (8)
  1. HUMATROPE [Suspect]
     Indication: HYPOPITUITARISM
     Dosage: 2.2 MG DAY
     Dates: start: 20030101
  2. PROTONIX [Concomitant]
  3. ZANTAC [Concomitant]
  4. CORTEF (HYDROCORTISONE CIPIONATE) [Concomitant]
  5. COLACE (DUCUSATE SODIUM) [Concomitant]
  6. SYNTHROID [Concomitant]
  7. CALCIUM CARBONATE [Concomitant]
  8. CARNITOR (LEVOCARNITINE) [Concomitant]

REACTIONS (2)
  - COELIAC DISEASE [None]
  - PYREXIA [None]
